FAERS Safety Report 5560975-4 (Version None)
Quarter: 2007Q4

REPORT INFORMATION
  Report Type: 
  Country: None (occurrence: None)
  Receive Date: 20071215
  Receipt Date: 20071129
  Transmission Date: 20080405
  Serious: No
  Sender: FDA-Public Use
  Company Number: US-ABBOTT-07P-163-0426811-00

PATIENT
  Sex: Male
  Weight: 86.26 kg

DRUGS (11)
  1. HUMIRA [Suspect]
     Indication: RHEUMATOID ARTHRITIS
     Route: 058
     Dates: start: 20070401, end: 20070501
  2. HUMIRA [Suspect]
     Indication: OSTEOARTHRITIS
     Route: 058
     Dates: start: 20070501
  3. TIZANIDINE HCL [Concomitant]
     Indication: SLEEP DISORDER THERAPY
     Route: 048
     Dates: start: 20050101
  4. TIZANIDINE HCL [Concomitant]
     Indication: PAIN
  5. TRAMADL/APAP [Concomitant]
     Indication: PAIN
     Route: 048
     Dates: start: 20030101
  6. SULINDAC [Concomitant]
     Indication: RHEUMATOID ARTHRITIS
     Route: 048
     Dates: start: 20030101
  7. HYDROXYZINE [Concomitant]
     Indication: PRURITUS
     Route: 048
     Dates: start: 20060101
  8. PREGABALIN [Concomitant]
     Indication: NERVOUSNESS
     Route: 048
     Dates: start: 20070901
  9. PANTOPRAZOLE SODIUM [Concomitant]
     Indication: GASTROOESOPHAGEAL REFLUX DISEASE
     Route: 048
     Dates: start: 20070901
  10. PHENERGAN HCL [Concomitant]
     Indication: PRURITUS
     Route: 048
     Dates: start: 20070901
  11. OMEPRAZOLE [Concomitant]
     Indication: GASTROOESOPHAGEAL REFLUX DISEASE
     Route: 048
     Dates: start: 20071001

REACTIONS (3)
  - CORONARY ARTERY OCCLUSION [None]
  - DRUG INEFFECTIVE [None]
  - PRURITUS [None]
